FAERS Safety Report 9858772 (Version 1)
Quarter: 2014Q1

REPORT INFORMATION
  Report Type: Spontaneous
  Country: US (occurrence: None)
  Receive Date: 20140130
  Receipt Date: 20140130
  Transmission Date: 20141002
  Serious: No
  Sender: FDA-Public Use
  Company Number: None

PATIENT
  Age: 88 Year
  Sex: Female

DRUGS (1)
  1. FORTEO 600MCG ELI LILLY [Suspect]
     Indication: OSTEOPOROSIS
     Dates: start: 20130327, end: 20131218

REACTIONS (1)
  - Rash [None]
